FAERS Safety Report 11999505 (Version 1)
Quarter: 2016Q1

REPORT INFORMATION
  Report Type: Spontaneous
  Country: US (occurrence: None)
  Receive Date: 20160203
  Receipt Date: 20160203
  Transmission Date: 20160526
  Serious: Yes (Other)
  Sender: FDA-Public Use
  Company Number: None

PATIENT
  Age: 64 Year
  Sex: Female
  Weight: 66.68 kg

DRUGS (2)
  1. RALOXIFENE 60MG [Suspect]
     Active Substance: RALOXIFENE
     Indication: BREAST CANCER RECURRENT
     Route: 048
     Dates: start: 201301
  2. RALOXIFENE 60MG [Suspect]
     Active Substance: RALOXIFENE
     Indication: PROPHYLAXIS
     Route: 048
     Dates: start: 201301

REACTIONS (1)
  - Fungal infection [None]
